FAERS Safety Report 9056035 (Version 2)
Quarter: 2013Q1

REPORT INFORMATION
  Report Type: Spontaneous
  Country: TR (occurrence: TR)
  Receive Date: 20130205
  Receipt Date: 20130211
  Transmission Date: 20140127
  Serious: Yes (Other)
  Sender: FDA-Public Use
  Company Number: TR-JNJFOC-20130117375

PATIENT
  Sex: Female

DRUGS (3)
  1. PARACETAMOL [Suspect]
     Route: 065
  2. PARACETAMOL [Suspect]
     Indication: SUICIDE ATTEMPT
     Route: 065
  3. PARACETAMOL [Suspect]
     Indication: SUICIDE ATTEMPT
     Route: 065

REACTIONS (3)
  - Toxicity to various agents [Unknown]
  - Exposure during pregnancy [Unknown]
  - Suicide attempt [None]
